FAERS Safety Report 7166603-9 (Version None)
Quarter: 2010Q4

REPORT INFORMATION
  Report Type: 
  Country: None (occurrence: None)
  Receive Date: 20101216
  Receipt Date: 20101213
  Transmission Date: 20110411
  Serious: Yes (Death)
  Sender: FDA-Public Use
  Company Number: IT-JNJFOC-20101204531

PATIENT
  Sex: Female

DRUGS (2)
  1. HALOPERIDOL DECANOATE [Suspect]
     Indication: ILL-DEFINED DISORDER
  2. RISPERIDONE [Suspect]
     Indication: ILL-DEFINED DISORDER

REACTIONS (1)
  - OVARIAN CANCER [None]
